FAERS Safety Report 9963818 (Version 1)
Quarter: 2014Q1

REPORT INFORMATION
  Report Type: Report from Study
  Country: US (occurrence: US)
  Receive Date: 20140305
  Receipt Date: 20140305
  Transmission Date: 20141002
  Serious: No
  Sender: FDA-Public Use
  Company Number: US-ABBVIE-13P-163-1119088-00

PATIENT
  Sex: Female
  Weight: 58.11 kg

DRUGS (10)
  1. HUMIRA [Suspect]
     Indication: RHEUMATOID ARTHRITIS
     Dates: start: 20130121, end: 20130429
  2. PLAQUINELL [Concomitant]
     Indication: RHEUMATOID ARTHRITIS
  3. ANSAID [Concomitant]
     Indication: RHEUMATOID ARTHRITIS
  4. PREDNISONE [Concomitant]
     Indication: RHEUMATOID ARTHRITIS
  5. PROTONIX [Concomitant]
     Indication: GASTROOESOPHAGEAL REFLUX DISEASE
  6. LETROZOLE [Concomitant]
     Indication: BREAST CANCER
  7. LOMOTIL [Concomitant]
     Indication: DIARRHOEA
  8. MECLAZINE [Concomitant]
     Indication: VERTIGO
  9. XALATAN [Concomitant]
     Indication: GLAUCOMA
  10. TIMOLOL [Concomitant]
     Indication: GLAUCOMA

REACTIONS (1)
  - Drug ineffective [Not Recovered/Not Resolved]
